FAERS Safety Report 9687886 (Version 2)
Quarter: 2013Q4

REPORT INFORMATION
  Report Type: Spontaneous
  Country: US (occurrence: US)
  Receive Date: 20131114
  Receipt Date: 20131122
  Transmission Date: 20140711
  Serious: Yes (Other)
  Sender: FDA-Public Use
  Company Number: US-PERRIGO-13US011455

PATIENT
  Age: 14 Year
  Sex: Female

DRUGS (1)
  1. NAPROXEN SODIUM 220 MG 368 [Suspect]
     Indication: INSOMNIA
     Dosage: 1760-1980 MG, SINGLE
     Route: 048
     Dates: start: 20131106, end: 20131106

REACTIONS (3)
  - Overdose [Unknown]
  - Abnormal behaviour [Unknown]
  - Off label use [Unknown]
